FAERS Safety Report 9564771 (Version 1)
Quarter: 2013Q3

REPORT INFORMATION
  Report Type: Spontaneous
  Country: CA (occurrence: CA)
  Receive Date: 20130930
  Receipt Date: 20130930
  Transmission Date: 20140515
  Serious: Yes (Other)
  Sender: FDA-Public Use
  Company Number: CA-ROCHE-1281958

PATIENT
  Age: 52 Year
  Sex: Female

DRUGS (11)
  1. PACLITAXEL [Concomitant]
     Dosage: LIQUID INTRAVENOUS
     Route: 065
  2. HERCEPTIN [Suspect]
     Indication: PRODUCT USED FOR UNKNOWN INDICATION
     Dosage: POWDER FOR SOLUTION INTRAVENOUS
     Route: 042
  3. DOCETAXEL [Suspect]
     Indication: PRODUCT USED FOR UNKNOWN INDICATION
     Dosage: SOLUTION INTRAVENOUS
     Route: 042
  4. DEXAMETHASONE [Suspect]
     Indication: PRODUCT USED FOR UNKNOWN INDICATION
     Route: 065
  5. ASPIRIN [Concomitant]
     Route: 065
  6. ATORVASTATIN CALCIUM [Concomitant]
     Route: 065
  7. CYCLOPHOSPHAMIDE [Concomitant]
     Dosage: POWDER FOR SOLUTION INTRAVENOUS
     Route: 065
  8. EPIRUBICIN HYDROCHLORIDE [Concomitant]
     Dosage: SOLUTION INTRAVENOUS
     Route: 042
  9. FLUOROURACIL [Concomitant]
     Route: 065
  10. METFORMIN [Concomitant]
     Route: 065
  11. NEULASTA [Concomitant]
     Dosage: SOLUTION SUBCUTANEOUS
     Route: 065

REACTIONS (4)
  - Anxiety [Unknown]
  - Ejection fraction decreased [Unknown]
  - Hyperglycaemia [Unknown]
  - Infusion related reaction [Unknown]
